FAERS Safety Report 15953366 (Version 1)
Quarter: 2019Q1

REPORT INFORMATION
  Report Type: Spontaneous
  Country: US (occurrence: US)
  Receive Date: 20190212
  Receipt Date: 20190212
  Transmission Date: 20190417
  Serious: No
  Sender: FDA-Public Use
  Company Number: US-GILEAD-2019-0390376

PATIENT
  Age: 49 Year
  Sex: Female

DRUGS (9)
  1. AMBIEN [Concomitant]
     Active Substance: ZOLPIDEM TARTRATE
  2. LAMICTAL [Concomitant]
     Active Substance: LAMOTRIGINE
  3. HARVONI [Suspect]
     Active Substance: LEDIPASVIR\SOFOSBUVIR
     Indication: CHRONIC HEPATITIS C
     Dosage: 1 DF
     Route: 048
     Dates: start: 201812
  4. B6 [Concomitant]
     Active Substance: PYRIDOXINE HYDROCHLORIDE
  5. CALCIUM;VITAMIN D [Concomitant]
  6. BIOTIN [Concomitant]
     Active Substance: BIOTIN
  7. VITAMIN B12 [Concomitant]
     Active Substance: CYANOCOBALAMIN
  8. WOMEN MULTI [Concomitant]
  9. METFORMIN HCL [Concomitant]
     Active Substance: METFORMIN HYDROCHLORIDE

REACTIONS (1)
  - Dyspepsia [Not Recovered/Not Resolved]
